FAERS Safety Report 5743475-8 (Version None)
Quarter: 2008Q2

REPORT INFORMATION
  Report Type: 
  Country: None (occurrence: None)
  Receive Date: 20080519
  Receipt Date: 20080519
  Transmission Date: 20081010
  Serious: Yes (Other)
  Sender: FDA-Public Use
  Company Number: None

PATIENT
  Sex: Male

DRUGS (1)
  1. FLUTICASONE PROPIONATE [Suspect]
     Indication: SEASONAL ALLERGY
     Dosage: 2 SPRAYS EACH NOSTRIL ONCE DAILY NASAL
     Route: 045

REACTIONS (8)
  - AGITATION [None]
  - ANGER [None]
  - ANXIETY [None]
  - EMOTIONAL DISORDER [None]
  - FEELING ABNORMAL [None]
  - IRRITABILITY [None]
  - PERSONALITY CHANGE [None]
  - TENSION [None]
